FAERS Safety Report 16844665 (Version 3)
Quarter: 2019Q4

REPORT INFORMATION
  Report Type: Not Available
  Country: US (occurrence: US)
  Receive Date: 20190924
  Receipt Date: 20191018
  Transmission Date: 20200122
  Serious: Yes (Death, Hospitalization)
  Sender: FDA-Public Use
  Company Number: US-NEUROCRINE BIOSCIENCES INC.-2019NBI02734

PATIENT
  Age: 71 Year
  Sex: Female

DRUGS (11)
  1. ATORVASTATIN [Concomitant]
     Active Substance: ATORVASTATIN
  2. INGREZZA [Suspect]
     Active Substance: VALBENAZINE
     Indication: TARDIVE DYSKINESIA
     Route: 048
     Dates: start: 20170714
  3. QUETIAPINE. [Concomitant]
     Active Substance: QUETIAPINE
  4. INCRUSE ELLIPTA [Concomitant]
     Active Substance: UMECLIDINIUM BROMIDE
     Indication: DYSPNOEA
  5. ASPIRIN. [Concomitant]
     Active Substance: ASPIRIN
  6. COGENTIN [Concomitant]
     Active Substance: BENZTROPINE MESYLATE
     Indication: DROOLING
  7. CLOZARIL [Concomitant]
     Active Substance: CLOZAPINE
  8. CLOZARIL [Concomitant]
     Active Substance: CLOZAPINE
     Indication: SCHIZOPHRENIA
  9. LOSARTAN. [Concomitant]
     Active Substance: LOSARTAN
  10. INCRUSE ELLIPTA [Concomitant]
     Active Substance: UMECLIDINIUM BROMIDE
     Indication: LUNG DISORDER
  11. QUETIAPINE. [Concomitant]
     Active Substance: QUETIAPINE
     Indication: DROOLING

REACTIONS (1)
  - Cardiac arrest [Fatal]

NARRATIVE: CASE EVENT DATE: 20190825
